FAERS Safety Report 17209037 (Version 1)
Quarter: 2019Q4

REPORT INFORMATION
  Report Type: Spontaneous
  Country: US (occurrence: US)
  Receive Date: 20191227
  Receipt Date: 20191227
  Transmission Date: 20200122
  Serious: No
  Sender: FDA-Public Use
  Company Number: US-SUNOVION-2019SUN005499

PATIENT
  Sex: Female

DRUGS (1)
  1. LATUDA [Suspect]
     Active Substance: LURASIDONE HYDROCHLORIDE
     Indication: PRODUCT USED FOR UNKNOWN INDICATION
     Dosage: 80 MG, BID (20 MG IN THE MORNING, 60 MG IN THE EVENING)
     Route: 048

REACTIONS (3)
  - Drug effective for unapproved indication [Unknown]
  - Somnolence [Unknown]
  - Off label use [Unknown]
